FAERS Safety Report 21337832 (Version 1)
Quarter: 2022Q3

REPORT INFORMATION
  Report Type: Spontaneous
  Country: TH (occurrence: TH)
  Receive Date: 20220915
  Receipt Date: 20220915
  Transmission Date: 20221026
  Serious: Yes (Hospitalization, Other)
  Sender: FDA-Public Use
  Company Number: TH-ALVOGEN-2022-ALVOGEN-120857

PATIENT
  Age: 38 Year
  Sex: Male

DRUGS (2)
  1. DEXAMETHASONE [Suspect]
     Active Substance: DEXAMETHASONE
     Indication: Cryptococcal meningoencephalitis
     Route: 042
  2. MEPERIDINE [Suspect]
     Active Substance: MEPERIDINE
     Indication: Pain

REACTIONS (3)
  - Cryptococcal meningoencephalitis [Recovering/Resolving]
  - Disease progression [Recovering/Resolving]
  - Disseminated cryptococcosis [Recovering/Resolving]
